FAERS Safety Report 13680060 (Version 3)
Quarter: 2018Q1

REPORT INFORMATION
  Report Type: Spontaneous
  Country: US (occurrence: US)
  Receive Date: 20170622
  Receipt Date: 20180308
  Transmission Date: 20180508
  Serious: No
  Sender: FDA-Public Use
  Company Number: US-PFIZER INC-2017266750

PATIENT
  Age: 57 Year
  Sex: Male
  Weight: 104.3 kg

DRUGS (4)
  1. TIKOSYN [Suspect]
     Active Substance: DOFETILIDE
     Indication: ATRIAL FIBRILLATION
     Dosage: 500 UG, 2X/DAY (EVERY 12 HOURS)
     Route: 048
     Dates: start: 201706, end: 201712
  2. ARGININE [Concomitant]
     Active Substance: ARGININE
     Dosage: UNK
  3. CITRULLINE [Concomitant]
     Active Substance: CITRULLINE
     Dosage: UNK
  4. XYLITOL [Concomitant]
     Active Substance: XYLITOL
     Dosage: UNK

REACTIONS (1)
  - Drug ineffective [Unknown]
